FAERS Safety Report 20956865 (Version 1)
Quarter: 2022Q2

REPORT INFORMATION
  Report Type: Spontaneous
  Country: FR (occurrence: FR)
  Receive Date: 20220614
  Receipt Date: 20220614
  Transmission Date: 20220721
  Serious: Yes (Other)
  Sender: FDA-Public Use
  Company Number: None

PATIENT
  Age: 51 Year
  Sex: Male

DRUGS (5)
  1. CANDESARTAN [Interacting]
     Active Substance: CANDESARTAN
     Indication: Hypertension
     Dosage: 16 MILLIGRAM, QD
     Route: 048
  2. RACECADOTRIL [Interacting]
     Active Substance: RACECADOTRIL
     Indication: Diarrhoea
     Dosage: 175 MILLIGRAM, TOTAL
     Route: 048
     Dates: start: 20220527, end: 20220527
  3. PHLOROGLUCINOL [Concomitant]
     Active Substance: PHLOROGLUCINOL
     Dosage: 1 DOSAGE FORM, PRN
     Route: 048
     Dates: start: 20220527
  4. SMECTA [Concomitant]
     Active Substance: MONTMORILLONITE
     Dosage: 1 DOSAGE FORM, PRN
     Route: 048
     Dates: start: 20220527, end: 20220527
  5. ATORVASTATIN [Concomitant]
     Active Substance: ATORVASTATIN
     Dosage: 10 MILLIGRAM, QD
     Route: 048

REACTIONS (2)
  - Angioedema [Recovered/Resolved]
  - Drug interaction [Recovered/Resolved]

NARRATIVE: CASE EVENT DATE: 20220527
